FAERS Safety Report 7205598-6 (Version None)
Quarter: 2010Q4

REPORT INFORMATION
  Report Type: 
  Country: None (occurrence: None)
  Receive Date: 20101231
  Receipt Date: 20101223
  Transmission Date: 20110411
  Serious: Yes (Other)
  Sender: FDA-Public Use
  Company Number: US-NOVOPROD-320265

PATIENT
  Sex: Female

DRUGS (2)
  1. VAGIFEM [Suspect]
     Indication: VULVOVAGINAL DRYNESS
     Dosage: UNK
     Route: 067
     Dates: start: 20080101
  2. VAGIFEM [Suspect]
     Indication: VULVOVAGINAL PRURITUS

REACTIONS (2)
  - DEPRESSION [None]
  - SUICIDAL IDEATION [None]
